FAERS Safety Report 12428841 (Version 1)
Quarter: 2016Q2

REPORT INFORMATION
  Report Type: Spontaneous
  Country: US (occurrence: None)
  Receive Date: 20160601
  Receipt Date: 20160601
  Transmission Date: 20160815
  Serious: Yes (Other)
  Sender: FDA-Public Use
  Company Number: None

PATIENT
  Age: 62 Year
  Sex: Male

DRUGS (1)
  1. TIMOLOL XE [Suspect]
     Active Substance: TIMOLOL
     Indication: GLAUCOMA
     Dosage: 1 DROP QD OU
     Dates: start: 20160316, end: 20160517

REACTIONS (2)
  - Reaction to drug excipients [None]
  - Erythema [None]

NARRATIVE: CASE EVENT DATE: 20160512
